FAERS Safety Report 24165559 (Version 1)
Quarter: 2024Q3

REPORT INFORMATION
  Report Type: Spontaneous
  Country: GE (occurrence: US)
  Receive Date: 20240802
  Receipt Date: 20240802
  Transmission Date: 20241017
  Serious: No
  Sender: VERRICA PHARMACEUTICALS
  Company Number: GE-VERRICA PHARMACEUTICALS INC.-2024VER000019

PATIENT
  Age: 2 Year

DRUGS (1)
  1. YCANTH [Suspect]
     Active Substance: CANTHARIDIN
     Indication: Skin lesion
     Dosage: UNK AS DIRECTED
     Route: 061
     Dates: start: 20240430

REACTIONS (2)
  - Application site reaction [Unknown]
  - Product administered at inappropriate site [Unknown]

NARRATIVE: CASE EVENT DATE: 20240430
